FAERS Safety Report 9643528 (Version 1)
Quarter: 2013Q4

REPORT INFORMATION
  Report Type: Spontaneous
  Country: US (occurrence: US)
  Receive Date: 20131024
  Receipt Date: 20131024
  Transmission Date: 20140711
  Serious: Yes (Other)
  Sender: FDA-Public Use
  Company Number: US-PFIZER INC-2013298317

PATIENT
  Age: 41 Year
  Sex: Female
  Weight: 82.54 kg

DRUGS (9)
  1. LYRICA [Suspect]
     Indication: FIBROMYALGIA
     Dosage: 50 MG, 2X/DAY
     Route: 048
     Dates: start: 201309, end: 201309
  2. LYRICA [Suspect]
     Dosage: 75 MG, UNK
     Route: 048
     Dates: start: 201309, end: 201309
  3. LYRICA [Suspect]
     Dosage: UNK
     Route: 048
     Dates: start: 201309
  4. BUSPIRONE [Concomitant]
     Indication: ANXIETY
     Dosage: UNK
  5. XANAX [Concomitant]
     Indication: ANXIETY
     Dosage: UNK
  6. EFFEXOR [Concomitant]
     Indication: DEPRESSION
     Dosage: UNK
  7. HYDROCODONE [Concomitant]
     Indication: PAIN
     Dosage: UNK
  8. GABAPENTIN [Concomitant]
     Dosage: UNK
  9. SOMA [Concomitant]
     Indication: MUSCLE SPASMS
     Dosage: UNK

REACTIONS (8)
  - Musculoskeletal disorder [Unknown]
  - Back disorder [Unknown]
  - Dizziness [Unknown]
  - Somnolence [Recovered/Resolved]
  - Vision blurred [Recovered/Resolved]
  - Dry mouth [Recovering/Resolving]
  - Burning sensation [Unknown]
  - Nerve injury [Unknown]
